FAERS Safety Report 4957954-4 (Version None)
Quarter: 2006Q1

REPORT INFORMATION
  Report Type: 
  Country: None (occurrence: None)
  Receive Date: 20060330
  Receipt Date: 20051025
  Transmission Date: 20060701
  Serious: Yes (Hospitalization, Other)
  Sender: FDA-Public Use
  Company Number: US-MERCK-0510USA09168

PATIENT
  Sex: Female
  Weight: 82 kg

DRUGS (1)
  1. VIOXX [Suspect]
     Indication: ARTHRITIS
     Route: 048
     Dates: start: 20020104, end: 20041008

REACTIONS (4)
  - ARTHROPATHY [None]
  - ATRIAL FIBRILLATION [None]
  - DYSPNOEA [None]
  - MYOCARDIAL INFARCTION [None]
